FAERS Safety Report 6764537 (Version 5)
Quarter: 2019Q1

REPORT INFORMATION
  Report Type: Spontaneous
  Country: DK (occurrence: DK)
  Receive Date: 20050906
  Receipt Date: 20190103
  Transmission Date: 20190418
  Serious: Yes (Life-Threatening, Other)
  Sender: FDA-Public Use
  Company Number: DK-PFIZER INC-2005120405

PATIENT
  Age: 80 Year
  Sex: Female

DRUGS (5)
  1. FLUCONAZOLE. [Suspect]
     Active Substance: FLUCONAZOLE
     Indication: ILL-DEFINED DISORDER
     Dosage: UNK
     Route: 048
  2. PHENPROCOUMON [Interacting]
     Active Substance: PHENPROCOUMON
     Dosage: 1.5 UNK, UNK
  3. PHENPROCOUMON [Interacting]
     Active Substance: PHENPROCOUMON
     Indication: ATRIAL FIBRILLATION
     Dosage: 1.5 MG, UNK (3 DAYS PER WEEK)
     Route: 048
  4. DICLOFENAC [Suspect]
     Active Substance: DICLOFENAC
     Dosage: UNK
     Route: 048
  5. NIMORAZOLE [Interacting]
     Active Substance: NIMORAZOLE
     Indication: HYPOPHARYNGEAL CANCER
     Dosage: 1500 MG, UNK (THERAPY GIVEN 1.5 HOURS PRIOR EACH RADIOTHERAPY FRACTION)
     Route: 048

REACTIONS (5)
  - Haemoglobin decreased [Recovered/Resolved]
  - International normalised ratio increased [Unknown]
  - Haematemesis [Recovered/Resolved]
  - Gastrointestinal haemorrhage [Recovered/Resolved]
  - Drug interaction [Recovered/Resolved]

NARRATIVE: CASE EVENT DATE: 2005
